FAERS Safety Report 7798051 (Version 6)
Quarter: 2012Q4

REPORT INFORMATION
  Report Type: 
  Country: JP (occurrence: JP)
  Receive Date: 20110203
  Receipt Date: 20121228
  Transmission Date: 20130627
  Serious: Yes (Life-Threatening, Hospitalization)
  Sender: FDA-Public Use
  Company Number: JP-B.I. PHARMACEUTICALS,INC./RIDGEFIELD-2011-DE-00747GD

PATIENT
  Sex: Male
  Weight: 45 kg

DRUGS (15)
  1. MOBIC [Suspect]
     Indication: NEPHROLITHIASIS
     Route: 048
  2. MOBIC [Suspect]
     Indication: BACK PAIN
  3. LOXONIN [Suspect]
     Indication: BACK PAIN
     Route: 048
     Dates: start: 2003, end: 200903
  4. FLIVAS OD [Concomitant]
     Dosage: 50 mg
     Route: 048
  5. UROCALUN [Concomitant]
     Dosage: 2025 mg
     Route: 048
  6. URALYT [Concomitant]
     Dosage: 9DF
     Route: 048
  7. SESDEN [Concomitant]
     Dosage: 270 mg
     Route: 048
  8. CALBOCK [Concomitant]
     Dosage: 16 mg
     Route: 048
  9. ARICEPT [Concomitant]
     Dosage: 5 mg
     Route: 048
  10. FRANDOL [Concomitant]
     Dosage: 80 mg
     Route: 048
  11. VESICARE [Concomitant]
     Dosage: 5 mg
     Route: 048
  12. ELASZYM [Concomitant]
     Dosage: 7200 mg
     Route: 048
  13. GASTROZEPIN [Concomitant]
     Dosage: 225 mg
     Route: 048
  14. TAGAMET [Concomitant]
     Dosage: 1800 mg
     Route: 048
  15. ISALON [Concomitant]
     Dosage: 900 mg
     Route: 048

REACTIONS (2)
  - Melaena [Not Recovered/Not Resolved]
  - Intestinal stenosis [Not Recovered/Not Resolved]
